FAERS Safety Report 5994356-6 (Version None)
Quarter: 2008Q4

REPORT INFORMATION
  Report Type: 
  Country: None (occurrence: None)
  Receive Date: 20081212
  Receipt Date: 20080908
  Transmission Date: 20090506
  Serious: No
  Sender: FDA-Public Use
  Company Number: US-ABBOTT-08P-163-0474857-00

PATIENT
  Sex: Female
  Weight: 108.96 kg

DRUGS (17)
  1. HUMIRA [Suspect]
     Indication: RHEUMATOID ARTHRITIS
     Route: 058
     Dates: start: 20080201, end: 20080301
  2. HUMIRA [Suspect]
     Route: 058
     Dates: start: 20080301, end: 20080701
  3. HUMIRA [Suspect]
     Route: 058
     Dates: start: 20080801
  4. LEFLUNOMIDE [Concomitant]
     Indication: RHEUMATOID ARTHRITIS
  5. DULOXETINE HYDROCHLORIDE [Concomitant]
     Indication: DEPRESSION
  6. BUPROPION HCL [Concomitant]
     Indication: DEPRESSION
  7. PRINZIDE [Concomitant]
     Indication: HYPERTENSION
  8. METFORMIN HCL [Concomitant]
     Indication: DIABETES MELLITUS
  9. INSULIN [Concomitant]
     Indication: DIABETES MELLITUS
     Dosage: PER SLIDING SCALE WITH BS}200
  10. BACLOFEN [Concomitant]
     Indication: MUSCLE SPASMS
  11. BACLOFEN [Concomitant]
     Indication: ARTHRITIS
  12. VICODIN [Concomitant]
     Indication: ARTHRALGIA
  13. ERGOCALCIFEROL [Concomitant]
     Indication: PROPHYLAXIS
  14. MULTI-VITAMIN [Concomitant]
     Indication: DRUG USE FOR UNKNOWN INDICATION
  15. LINUM USITATISSIMUM SEED OIL [Concomitant]
     Indication: CARDIAC DISORDER
  16. DOXYCYCLINE [Concomitant]
     Indication: CELLULITIS
  17. DOXYCYCLINE [Concomitant]
     Indication: RHEUMATOID ARTHRITIS

REACTIONS (2)
  - CELLULITIS [None]
  - DRUG INEFFECTIVE [None]
